FAERS Safety Report 5458074-5 (Version None)
Quarter: 2007Q3

REPORT INFORMATION
  Report Type: 
  Country: None (occurrence: None)
  Receive Date: 20070917
  Receipt Date: 20070912
  Transmission Date: 20080115
  Serious: Yes (Hospitalization, Other)
  Sender: FDA-Public Use
  Company Number: 2005-04-0677

PATIENT
  Age: 67 Year
  Sex: Female

DRUGS (4)
  1. ISOSORBIDE MONONITRATE [Suspect]
     Indication: CARDIOVASCULAR DISORDER
     Dosage: 10 MG;QD;PO
     Route: 048
  2. BISOPROLOL FUMARATE [Suspect]
     Indication: CARDIOVASCULAR DISORDER
  3. BUMETANIDE [Suspect]
     Indication: CARDIOVASCULAR DISORDER
     Dosage: 2 MG;
  4. ENALAPRIL MALEATE [Suspect]
     Indication: ANGIOPLASTY
     Dosage: 10 MG;

REACTIONS (7)
  - DIALYSIS [None]
  - DIARRHOEA [None]
  - ELECTROCARDIOGRAM QRS COMPLEX PROLONGED [None]
  - ELECTROCARDIOGRAM T WAVE AMPLITUDE DECREASED [None]
  - RENAL FAILURE ACUTE [None]
  - SHOCK [None]
  - UNRESPONSIVE TO STIMULI [None]
